FAERS Safety Report 14857982 (Version 4)
Quarter: 2018Q2

REPORT INFORMATION
  Report Type: Report from Study
  Country: US (occurrence: US)
  Receive Date: 20180508
  Receipt Date: 20180606
  Transmission Date: 20180711
  Serious: Yes (Hospitalization, Other)
  Sender: FDA-Public Use
  Company Number: US-BRISTOL-MYERS SQUIBB COMPANY-BMS-2018-041788

PATIENT
  Age: 75 Year
  Sex: Male
  Weight: 89.8 kg

DRUGS (11)
  1. HYDROCODONE/ACETAMINOPHEN [Concomitant]
     Active Substance: ACETAMINOPHEN\HYDROCODONE
     Indication: ABDOMINAL DISCOMFORT
     Dosage: 1 TAB, UNK
     Route: 048
     Dates: start: 20180323
  2. MORPHINE SULFATE. [Concomitant]
     Active Substance: MORPHINE SULFATE
     Indication: ABDOMINAL DISCOMFORT
     Dosage: 4 MG, UNK
     Route: 042
     Dates: start: 20180321
  3. CYMBALTA [Concomitant]
     Active Substance: DULOXETINE HYDROCHLORIDE
     Indication: ABDOMINAL DISCOMFORT
     Dosage: 30 MG, UNK
     Route: 048
     Dates: start: 20180419
  4. VENTOLIN [Concomitant]
     Active Substance: ALBUTEROL SULFATE
     Indication: DYSPNOEA
     Dosage: 2.5 MG, UNK
     Route: 042
     Dates: start: 20180402
  5. NIVOLUMAB [Suspect]
     Active Substance: NIVOLUMAB
     Indication: NON-SMALL CELL LUNG CANCER
     Dosage: 1 DF, UNK
     Route: 065
     Dates: start: 20180116, end: 20180410
  6. FENTANYL. [Concomitant]
     Active Substance: FENTANYL
     Indication: ABDOMINAL DISCOMFORT
     Dosage: 25 MG, UNK
     Route: 061
     Dates: start: 20180410
  7. TORADOL [Concomitant]
     Active Substance: KETOROLAC TROMETHAMINE
     Indication: ABDOMINAL DISCOMFORT
     Dosage: 30 MG, UNK
     Route: 042
     Dates: start: 20180321
  8. ONDANSETRON HCL [Concomitant]
     Active Substance: ONDANSETRON HYDROCHLORIDE
     Indication: ABDOMINAL DISCOMFORT
     Dosage: 4 MG, UNK
     Route: 042
     Dates: start: 20180321
  9. PREDNISONE. [Concomitant]
     Active Substance: PREDNISONE
     Indication: PNEUMONIA
     Dosage: 10 MG, UNK
     Route: 048
     Dates: start: 20180413
  10. PANTOPRAZOLE [Concomitant]
     Active Substance: PANTOPRAZOLE
     Indication: PANCREATITIS
     Dosage: 40 MG, UNK
     Route: 048
     Dates: start: 20180416
  11. DEXAMETHASONE. [Concomitant]
     Active Substance: DEXAMETHASONE
     Indication: ABDOMINAL DISCOMFORT
     Dosage: 10 MG, UNK
     Route: 042
     Dates: start: 20180321

REACTIONS (1)
  - Acute respiratory failure [Recovered/Resolved]

NARRATIVE: CASE EVENT DATE: 20180501
